FAERS Safety Report 6762123-1 (Version None)
Quarter: 2010Q2

REPORT INFORMATION
  Report Type: 
  Country: None (occurrence: None)
  Receive Date: 20100609
  Receipt Date: 20100531
  Transmission Date: 20101027
  Serious: Yes (Other)
  Sender: FDA-Public Use
  Company Number: CZ-PFIZER INC-2010068360

PATIENT
  Age: 16 Year
  Sex: Female

DRUGS (7)
  1. SOMATROPIN [Suspect]
     Indication: HYPOPITUITARISM
     Dosage: UNK
     Dates: start: 20090101
  2. HIDROCORTIZON [Suspect]
     Dosage: UNK
  3. LEVOTHYROXINE SODIUM [Suspect]
  4. MINIRIN ^AVENTIS PHARMA^ [Suspect]
  5. ETHINYL ESTRADIOL [Suspect]
  6. OXAZEPAM [Suspect]
  7. AMITRIPTYLINE [Suspect]

REACTIONS (2)
  - OBSESSIVE-COMPULSIVE DISORDER [None]
  - WEIGHT INCREASED [None]
